FAERS Safety Report 7437841-2 (Version None)
Quarter: 2011Q2

REPORT INFORMATION
  Report Type: 
  Country: None (occurrence: None)
  Receive Date: 20110426
  Receipt Date: 20110420
  Transmission Date: 20111010
  Serious: Yes (Hospitalization)
  Sender: FDA-Public Use
  Company Number: A0897040A

PATIENT
  Age: 44 Year
  Sex: Male
  Weight: 90 kg

DRUGS (11)
  1. EFFEXOR XR [Concomitant]
  2. HUMALOG [Concomitant]
  3. CIALIS [Concomitant]
  4. VIAGRA [Concomitant]
  5. AVANDIA [Suspect]
     Dosage: 8MG PER DAY
     Route: 048
     Dates: start: 20000404, end: 20050915
  6. HUMULIN R [Concomitant]
  7. SEROQUEL [Concomitant]
  8. PRANDIN [Concomitant]
  9. HALDOL [Concomitant]
  10. LANTUS [Concomitant]
  11. LISINOPRIL [Concomitant]

REACTIONS (2)
  - CEREBROVASCULAR ACCIDENT [None]
  - CARDIOVASCULAR DISORDER [None]
